FAERS Safety Report 20980338 (Version 1)
Quarter: 2022Q2

REPORT INFORMATION
  Report Type: Spontaneous
  Country: US (occurrence: US)
  Receive Date: 20220620
  Receipt Date: 20220620
  Transmission Date: 20220720
  Serious: No
  Sender: FDA-Public Use
  Company Number: US-GLAXOSMITHKLINE-USCH2022020611

PATIENT
  Age: 61 Year
  Sex: Female

DRUGS (3)
  1. NICODERM CQ [Suspect]
     Active Substance: NICOTINE
     Indication: Product used for unknown indication
     Dosage: UNK
     Dates: start: 20220609, end: 20220610
  2. NICODERM CQ [Suspect]
     Active Substance: NICOTINE
     Indication: Product used for unknown indication
     Dosage: UNK
     Dates: start: 20220608, end: 20220608
  3. NICODERM CQ [Suspect]
     Active Substance: NICOTINE

REACTIONS (2)
  - Application site rash [Unknown]
  - Application site pruritus [Not Recovered/Not Resolved]

NARRATIVE: CASE EVENT DATE: 20220609
